FAERS Safety Report 4991944-0 (Version None)
Quarter: 2006Q2

REPORT INFORMATION
  Report Type: 
  Country: None (occurrence: None)
  Receive Date: 20060504
  Receipt Date: 20050408
  Transmission Date: 20061013
  Serious: Yes (Hospitalization)
  Sender: FDA-Public Use
  Company Number: US-MERCK-0504USA01667

PATIENT
  Age: 20 Year
  Sex: Female
  Weight: 43 kg

DRUGS (1)
  1. VIOXX [Suspect]
     Indication: PAIN MANAGEMENT
     Route: 048
     Dates: start: 20030401, end: 20031001

REACTIONS (3)
  - COMA [None]
  - ISCHAEMIC STROKE [None]
  - LOCALISED INFECTION [None]
